FAERS Safety Report 12877203 (Version 3)
Quarter: 2016Q4

REPORT INFORMATION
  Report Type: Spontaneous
  Country: US (occurrence: US)
  Receive Date: 20161024
  Receipt Date: 20161216
  Transmission Date: 20170207
  Serious: Yes (Other)
  Sender: FDA-Public Use
  Company Number: US-BAYER-2016-199813

PATIENT
  Age: 26 Year
  Sex: Female

DRUGS (2)
  1. MIRENA [Suspect]
     Active Substance: LEVONORGESTREL
  2. MIRENA [Suspect]
     Active Substance: LEVONORGESTREL
     Indication: CONTRACEPTION
     Dosage: 20 MCG/24HR, CONT
     Route: 015
     Dates: start: 201509, end: 20160928

REACTIONS (6)
  - Device difficult to use [Unknown]
  - Device breakage [Unknown]
  - Embedded device [Unknown]
  - Abdominal pain lower [Unknown]
  - Complication of device removal [None]
  - Device intolerance [Unknown]

NARRATIVE: CASE EVENT DATE: 201609
